FAERS Safety Report 18552176 (Version 1)
Quarter: 2020Q4

REPORT INFORMATION
  Report Type: Spontaneous
  Country: OM (occurrence: OM)
  Receive Date: 20201127
  Receipt Date: 20201127
  Transmission Date: 20210114
  Serious: Yes (Life-Threatening, Hospitalization, Other)
  Sender: FDA-Public Use
  Company Number: OM-AMGEN-OMNSP2020191935

PATIENT
  Age: 14 Year
  Sex: Male

DRUGS (3)
  1. FILGRASTIM [Suspect]
     Active Substance: FILGRASTIM
     Indication: AGRANULOCYTOSIS
     Dosage: 7.5 MICROGRAM/KILOGRAM
     Route: 065
  2. DEFERASIROX. [Concomitant]
     Active Substance: DEFERASIROX
     Dosage: UNK
  3. DEFEROXAMINE [Concomitant]
     Active Substance: DEFEROXAMINE MESYLATE
     Dosage: UNK

REACTIONS (6)
  - Off label use [Unknown]
  - Infective aneurysm [Recovered/Resolved]
  - Aneurysm ruptured [Recovered/Resolved]
  - Pneumonia [Recovered/Resolved]
  - Haemoptysis [Recovered/Resolved]
  - Cardio-respiratory arrest [Recovered/Resolved]
